FAERS Safety Report 19307741 (Version 3)
Quarter: 2021Q3

REPORT INFORMATION
  Report Type: Spontaneous
  Country: JP (occurrence: JP)
  Receive Date: 20210526
  Receipt Date: 20210831
  Transmission Date: 20211014
  Serious: Yes (Hospitalization)
  Sender: FDA-Public Use
  Company Number: NVSJ2021JP007819

PATIENT
  Age: 20 Year
  Sex: Female

DRUGS (4)
  1. TARIVIT [Suspect]
     Active Substance: OFLOXACIN
     Indication: CONJUNCTIVITIS BACTERIAL
     Dosage: UNK, 2?3 TIMES/DAY
     Route: 047
     Dates: start: 20200515, end: 20200519
  2. VEGAMOX [Suspect]
     Active Substance: MOXIFLOXACIN HYDROCHLORIDE
     Indication: CONJUNCTIVITIS BACTERIAL
     Dosage: UNK UNK, QID
     Route: 047
     Dates: start: 20200515, end: 20200519
  3. FML [Concomitant]
     Active Substance: FLUOROMETHOLONE
     Indication: CONJUNCTIVITIS BACTERIAL
     Dosage: UNK, QID
     Route: 047
     Dates: start: 20200515, end: 20200519
  4. GATIFLO [Concomitant]
     Active Substance: GATIFLOXACIN
     Indication: CONJUNCTIVITIS BACTERIAL
     Dosage: UNK UNK, QID
     Route: 047
     Dates: start: 20200515, end: 20200519

REACTIONS (5)
  - Pyrexia [Recovered/Resolved]
  - Face oedema [Recovering/Resolving]
  - Erythema [Recovered/Resolved]
  - Type I hypersensitivity [Recovered/Resolved]
  - Feeling hot [Recovered/Resolved]

NARRATIVE: CASE EVENT DATE: 20200515
